FAERS Safety Report 4560786-2 (Version None)
Quarter: 2005Q1

REPORT INFORMATION
  Report Type: 
  Country: None (occurrence: None)
  Receive Date: 20050124
  Receipt Date: 20050117
  Transmission Date: 20050727
  Serious: Yes (Other)
  Sender: FDA-Public Use
  Company Number: FRWYE325710JAN05

PATIENT
  Age: 49 Year
  Sex: Female

DRUGS (5)
  1. RAPAMUNE [Suspect]
     Indication: PROPHYLAXIS AGAINST TRANSPLANT REJECTION
     Dosage: 3 MG  1X PER 1 DAY ORAL; 1 MG 1X PER 1 DAY ORAL
     Route: 048
     Dates: start: 20030902, end: 20030101
  2. RAPAMUNE [Suspect]
     Indication: PROPHYLAXIS AGAINST TRANSPLANT REJECTION
     Dosage: 3 MG  1X PER 1 DAY ORAL; 1 MG 1X PER 1 DAY ORAL
     Route: 048
     Dates: start: 20030101
  3. AZATHIOPRINE [Suspect]
     Indication: PROPHYLAXIS AGAINST TRANSPLANT REJECTION
     Dosage: 50 MG 1X PER 1 DAY ORAL
     Route: 048
     Dates: start: 19930221
  4. TENORMIN [Suspect]
     Dosage: 50 MG 1X PER 1 DAY ORAL
     Route: 048
     Dates: end: 20031222
  5. TENORMIN [Suspect]
     Dosage: 50 MG 1X PER 1 DAY ORAL
     Route: 048
     Dates: start: 20040315

REACTIONS (6)
  - CONDITION AGGRAVATED [None]
  - DISEASE RECURRENCE [None]
  - HEPATITIS C [None]
  - LEUKOPENIA [None]
  - NEUTROPENIA [None]
  - PROTEINURIA [None]
